FAERS Safety Report 25868252 (Version 1)
Quarter: 2025Q4

REPORT INFORMATION
  Report Type: Spontaneous
  Country: US (occurrence: US)
  Receive Date: 20251001
  Receipt Date: 20251001
  Transmission Date: 20260118
  Serious: No
  Sender: RECKITT BENCKISER
  Company Number: US-INDIVIOR US-INDV-144640-2024

PATIENT
  Age: 26 Year
  Sex: Female

DRUGS (9)
  1. SUBOXONE [Suspect]
     Active Substance: BUPRENORPHINE HYDROCHLORIDE\NALOXONE HYDROCHLORIDE
     Indication: Drug use disorder
     Dosage: 8 MILLIGRAM
     Route: 060
     Dates: start: 201211
  2. SUBOXONE [Suspect]
     Active Substance: BUPRENORPHINE HYDROCHLORIDE\NALOXONE HYDROCHLORIDE
     Dosage: 8 MILLIGRAM, TID
     Route: 060
     Dates: start: 201908
  3. SUBOXONE [Suspect]
     Active Substance: BUPRENORPHINE HYDROCHLORIDE\NALOXONE HYDROCHLORIDE
     Indication: Drug use disorder
     Dosage: 1/2 FILM EVERY DAY
     Route: 060
     Dates: start: 201304
  4. SUBOXONE [Suspect]
     Active Substance: BUPRENORPHINE HYDROCHLORIDE\NALOXONE HYDROCHLORIDE
     Indication: Drug use disorder
     Dosage: ONE AND A HALF FILM EVERY DAY
     Route: 060
     Dates: start: 200810
  5. SUBOXONE [Suspect]
     Active Substance: BUPRENORPHINE HYDROCHLORIDE\NALOXONE HYDROCHLORIDE
     Dosage: 8 MILLIGRAM
     Route: 060
     Dates: start: 201101
  6. SUBOXONE [Suspect]
     Active Substance: BUPRENORPHINE HYDROCHLORIDE\NALOXONE HYDROCHLORIDE
     Dosage: 8 MILLIGRAM, BID
     Route: 060
     Dates: start: 201111
  7. SUBUTEX [Suspect]
     Active Substance: BUPRENORPHINE HYDROCHLORIDE
     Indication: Drug use disorder
     Dosage: 8 MILLIGRAM, QD
     Route: 060
     Dates: start: 201003
  8. BUPRENORPHINE\NALOXONE [Suspect]
     Active Substance: BUPRENORPHINE\NALOXONE
     Indication: Drug use disorder
     Dosage: 8 MILLIGRAM, BID
     Route: 060
     Dates: start: 201307
  9. BUPRENORPHINE [Suspect]
     Active Substance: BUPRENORPHINE
     Indication: Drug use disorder
     Dosage: 8 MILLIGRAM, QD
     Route: 060
     Dates: start: 201002

REACTIONS (7)
  - Dental caries [Not Recovered/Not Resolved]
  - Tooth erosion [Not Recovered/Not Resolved]
  - Tooth fracture [Unknown]
  - Dental restoration failure [Unknown]
  - Gingivitis [Unknown]
  - Inappropriate schedule of product administration [Unknown]
  - Wrong technique in product usage process [Unknown]

NARRATIVE: CASE EVENT DATE: 20081001
